FAERS Safety Report 7577560-5 (Version None)
Quarter: 2011Q2

REPORT INFORMATION
  Report Type: 
  Country: None (occurrence: None)
  Receive Date: 20110628
  Receipt Date: 20110620
  Transmission Date: 20111010
  Serious: Yes (Other)
  Sender: FDA-Public Use
  Company Number: IT-BRISTOL-MYERS SQUIBB COMPANY-15855315

PATIENT
  Age: 14 Year
  Sex: Female

DRUGS (4)
  1. DOXORUBICIN HCL [Suspect]
     Indication: BONE SARCOMA
  2. IFOSFAMIDE [Suspect]
     Indication: BONE SARCOMA
  3. METHOTREXATE [Suspect]
     Indication: BONE SARCOMA
     Dosage: 1DF:12 G/MQ CUMULATIVE DOSE:484 G/MQ
  4. CISPLATIN [Suspect]
     Indication: BONE SARCOMA

REACTIONS (1)
  - OSTEOPOROTIC FRACTURE [None]
